FAERS Safety Report 4829121-6 (Version None)
Quarter: 2005Q4

REPORT INFORMATION
  Report Type: 
  Country: None (occurrence: None)
  Receive Date: 20051116
  Receipt Date: 20051102
  Transmission Date: 20060501
  Serious: Yes (Death)
  Sender: FDA-Public Use
  Company Number: DE-AMGEN-UK156553

PATIENT
  Sex: Male

DRUGS (2)
  1. NEULASTA [Suspect]
     Indication: PERIPHERAL BLOOD STEM CELL APHERESIS
     Route: 065
  2. CORTICOSTEROID NOS [Concomitant]
     Route: 065

REACTIONS (7)
  - AMYLOIDOSIS [None]
  - CARDIOVASCULAR INSUFFICIENCY [None]
  - HEPATIC FAILURE [None]
  - LEUKAPHERESIS [None]
  - LEUKOCYTOSIS [None]
  - MULTI-ORGAN FAILURE [None]
  - PLASMAPHERESIS [None]
